FAERS Safety Report 5431866-4 (Version None)
Quarter: 2007Q3

REPORT INFORMATION
  Report Type: 
  Country: None (occurrence: None)
  Receive Date: 20070731
  Receipt Date: 20070611
  Transmission Date: 20080115
  Serious: No
  Sender: FDA-Public Use
  Company Number: US200706002686

PATIENT
  Age: 53 Year
  Sex: Male

DRUGS (4)
  1. BYETTA [Suspect]
     Indication: TYPE 2 DIABETES MELLITUS
     Dosage: 5 UG, DAILY (1/D), SUBCUTANEOUS
     Route: 058
     Dates: start: 20070604
  2. EXENATIDE 5MCG PEN, DISPOSABLE DEVICE (EXENATIDE PEN) (5MCG)) PEN, DIS [Concomitant]
  3. HUMALOG [Concomitant]
  4. LANTUS [Concomitant]

REACTIONS (4)
  - BLOOD GLUCOSE INCREASED [None]
  - DECREASED APPETITE [None]
  - EARLY SATIETY [None]
  - NAUSEA [None]
